FAERS Safety Report 5799605-5 (Version None)
Quarter: 2008Q3

REPORT INFORMATION
  Report Type: 
  Country: None (occurrence: None)
  Receive Date: 20080703
  Receipt Date: 20080628
  Transmission Date: 20090109
  Serious: Yes (Death, Other)
  Sender: FDA-Public Use
  Company Number: PHHY2008IN12367

PATIENT
  Age: 53 Year
  Sex: Female

DRUGS (1)
  1. ASUNRA [Suspect]

REACTIONS (2)
  - CONVULSION [None]
  - DEATH [None]
